FAERS Safety Report 4962688-6 (Version None)
Quarter: 2006Q2

REPORT INFORMATION
  Report Type: 
  Country: None (occurrence: None)
  Receive Date: 20060404
  Receipt Date: 20051013
  Transmission Date: 20061013
  Serious: Yes (Death)
  Sender: FDA-Public Use
  Company Number: US-MERCK-0510USA07013

PATIENT
  Age: 22 Year
  Sex: Male
  Weight: 80 kg

DRUGS (5)
  1. VIOXX [Suspect]
     Indication: PAIN
     Route: 048
     Dates: start: 20001001
  2. VIOXX [Suspect]
     Route: 048
     Dates: start: 19990101
  3. VIOXX [Suspect]
     Indication: INFLAMMATION
     Route: 048
     Dates: start: 20001001
  4. VIOXX [Suspect]
     Route: 048
     Dates: start: 19990101
  5. IBUPROFEN [Concomitant]
     Route: 065

REACTIONS (1)
  - CARDIO-RESPIRATORY ARREST [None]
